FAERS Safety Report 7418014-6 (Version None)
Quarter: 2011Q2

REPORT INFORMATION
  Report Type: 
  Country: None (occurrence: None)
  Receive Date: 20110415
  Receipt Date: 20110331
  Transmission Date: 20111010
  Serious: Yes (Hospitalization)
  Sender: FDA-Public Use
  Company Number: US-ROCHE-768784

PATIENT
  Age: 54 Year
  Sex: Male
  Weight: 72 kg

DRUGS (22)
  1. CEFUROXIME [Concomitant]
     Indication: OTITIS MEDIA
     Dates: start: 20101013, end: 20101019
  2. FLUOCINONIDE [Concomitant]
     Dates: start: 20101209
  3. PEGINTERFERON ALFA-2A [Suspect]
     Route: 058
     Dates: start: 20100528, end: 20100806
  4. BLINDED ABT-450 [Suspect]
     Route: 048
     Dates: start: 20100525, end: 20100818
  5. CEPHALEXIN [Concomitant]
     Dosage: FOR RIGHT AXILLA
     Dates: start: 20100625, end: 20100704
  6. CHLORMEZANONE [Concomitant]
     Indication: INSOMNIA
     Dosage: AS REQUIRED
     Dates: start: 20100803, end: 20101207
  7. IBUPROFEN [Concomitant]
     Dosage: AS REQUIRED
     Dates: start: 20100811
  8. TRIAZOLAMUM [Concomitant]
     Indication: INSOMNIA
     Dosage: AS REQUIRED
     Dates: start: 20110105
  9. GABAPENTIN [Concomitant]
     Dates: start: 20100813, end: 20100818
  10. VICODIN [Concomitant]
     Dates: start: 20100819
  11. BISMUTH [Concomitant]
     Dosage: AS REQUIRED
     Dates: start: 20100903, end: 20100905
  12. HYDROCORTISONE [Concomitant]
     Dosage: AS REQUIRED
     Dates: start: 20100915, end: 20101207
  13. PEGINTERFERON ALFA-2A [Suspect]
     Route: 058
     Dates: start: 20100807, end: 20100922
  14. DIPHENHYDRAMINE HYDROCHLORIDE [Concomitant]
     Indication: INSOMNIA
     Dosage: DRUG REPORTED: DOZOL, AS REQUIRED
     Dates: start: 20100621, end: 20100621
  15. LOCORTEN [Concomitant]
     Indication: OTITIS MEDIA
     Dosage: AS REQUIRED
     Dates: start: 20101013, end: 20101018
  16. ZOLPIDEM [Concomitant]
     Indication: INSOMNIA
     Dosage: AS REQUIRED
     Dates: start: 20101208, end: 20110104
  17. PROPRANOLOL [Concomitant]
     Indication: HEADACHE
     Dates: start: 20101208
  18. RIBAVIRIN [Suspect]
     Route: 065
     Dates: start: 20100528
  19. RITONAVIR [Suspect]
     Dosage: GELATIN CAPSULES
     Route: 048
     Dates: start: 20100525, end: 20100818
  20. CITALOPRAM [Concomitant]
     Indication: DEPRESSION
     Dates: start: 20100611, end: 20100716
  21. PARACETAMOL [Concomitant]
     Indication: HEADACHE
     Dosage: AS REQUIRED
     Dates: start: 20100612, end: 20101201
  22. GABAPENTIN [Concomitant]
     Dates: start: 20100819

REACTIONS (2)
  - DEHYDRATION [None]
  - MIGRAINE [None]
